FAERS Safety Report 6954804-1 (Version None)
Quarter: 2010Q3

REPORT INFORMATION
  Report Type: 
  Country: None (occurrence: None)
  Receive Date: 20100830
  Receipt Date: 20100805
  Transmission Date: 20110219
  Serious: Yes (Death, Hospitalization, Other)
  Sender: FDA-Public Use
  Company Number: US-BAYER-201011808NA

PATIENT
  Age: 36 Year
  Sex: Female
  Weight: 141 kg

DRUGS (4)
  1. YAZ [Suspect]
     Indication: PRODUCT USED FOR UNKNOWN INDICATION
     Route: 048
     Dates: end: 20071125
  2. YASMIN [Suspect]
     Indication: CONTRACEPTION
     Route: 048
     Dates: start: 20020201, end: 20040701
  3. YASMIN [Suspect]
     Route: 048
     Dates: start: 20060801, end: 20071125
  4. ALEVE-D SINUS + COLD [Concomitant]
     Dosage: 2002 AND 2006
     Route: 065

REACTIONS (1)
  - PULMONARY EMBOLISM [None]
